FAERS Safety Report 11010399 (Version 1)
Quarter: 2015Q2

REPORT INFORMATION
  Report Type: Spontaneous
  Country: CA (occurrence: CA)
  Receive Date: 20150410
  Receipt Date: 20150410
  Transmission Date: 20150821
  Serious: Yes (Hospitalization, Other)
  Sender: FDA-Public Use
  Company Number: CA-GLAXOSMITHKLINE-CA2015GSK048336

PATIENT
  Age: 12 Year
  Sex: Female
  Weight: 51 kg

DRUGS (1)
  1. BUPROPION [Suspect]
     Active Substance: BUPROPION

REACTIONS (14)
  - Intentional overdose [Recovered/Resolved]
  - Generalised tonic-clonic seizure [Recovered/Resolved]
  - Electrocardiogram QT prolonged [Recovered/Resolved]
  - Myoclonus [Unknown]
  - Choreoathetosis [Unknown]
  - Headache [Recovered/Resolved]
  - Somnolence [Recovered/Resolved]
  - Tachycardia [Recovered/Resolved]
  - Confusional state [Recovered/Resolved]
  - Nystagmus [Unknown]
  - Vomiting [Unknown]
  - Suicide attempt [Recovered/Resolved]
  - Abdominal pain [Recovered/Resolved]
  - Blood creatine phosphokinase increased [Unknown]
